FAERS Safety Report 4764424-5 (Version None)
Quarter: 2005Q3

REPORT INFORMATION
  Report Type: 
  Country: None (occurrence: None)
  Receive Date: 20050906
  Receipt Date: 20050822
  Transmission Date: 20060218
  Serious: Yes (Other)
  Sender: FDA-Public Use
  Company Number: 2005118781

PATIENT
  Sex: Male

DRUGS (11)
  1. ZOLOFT [Suspect]
     Indication: MOOD ALTERED
     Dosage: 50 MG (50 MG, 1 IN 1 D), ORAL
     Route: 048
  2. NORVASC [Suspect]
     Indication: ILL-DEFINED DISORDER
     Dosage: 5 MG
  3. XANAX [Concomitant]
  4. AMBIEN [Concomitant]
  5. PEPCID [Concomitant]
  6. LORCET PLUS (HYDROCODONE BITARTRATE, PARACETAMOL) [Concomitant]
  7. NIASPAN [Concomitant]
  8. LOVASTATIN [Concomitant]
  9. NITROSTAT [Concomitant]
  10. SPIRIVA    PFIZER   (TIOTROPIUM BROMIDE) [Concomitant]
  11. ALBUTEROL [Concomitant]

REACTIONS (5)
  - BRONCHIECTASIS [None]
  - CHRONIC OBSTRUCTIVE PULMONARY DISEASE [None]
  - MYOCARDIAL INFARCTION [None]
  - NASOPHARYNGITIS [None]
  - WEIGHT DECREASED [None]
